FAERS Safety Report 5080743-X (Version None)
Quarter: 2006Q3

REPORT INFORMATION
  Report Type: 
  Country: None (occurrence: None)
  Receive Date: 20060809
  Receipt Date: 20060724
  Transmission Date: 20061208
  Serious: Yes (Hospitalization, Other)
  Sender: FDA-Public Use
  Company Number: 2006AL001931

PATIENT
  Age: 41 Year
  Sex: Male

DRUGS (4)
  1. DICLOFENAC [Suspect]
     Indication: PAIN
     Dates: start: 20060113, end: 20060113
  2. AMOXICILLIN [Concomitant]
  3. CLAVULANIC ACID [Concomitant]
  4. VOLTAREN [Concomitant]

REACTIONS (2)
  - EPISTAXIS [None]
  - POST PROCEDURAL HAEMORRHAGE [None]
